FAERS Safety Report 9132968 (Version 1)
Quarter: 2013Q1

REPORT INFORMATION
  Report Type: Report from Study
  Country: JP (occurrence: JP)
  Receive Date: 20130116
  Receipt Date: 20130116
  Transmission Date: 20140127
  Serious: Yes (Hospitalization, Other)
  Sender: FDA-Public Use
  Company Number: JP-009507513-2012SP032456

PATIENT
  Age: 60 Year
  Sex: Male
  Weight: 64 kg

DRUGS (7)
  1. PEGINTERFERON ALFA-2B [Suspect]
     Indication: CHRONIC HEPATITIS C
     Dosage: 1.5 MICROGRAM PER KILOGRAM, QW
     Route: 051
     Dates: start: 20120404, end: 20120522
  2. REBETOL [Suspect]
     Indication: CHRONIC HEPATITIS C
     Dosage: 600 MG, QD
     Route: 048
     Dates: start: 20120404, end: 20120522
  3. TELAVIC [Suspect]
     Indication: CHRONIC HEPATITIS C
     Dosage: 1500 MG, QD
     Route: 048
     Dates: start: 20120404, end: 20120522
  4. LOXONIN [Suspect]
     Indication: ADVERSE EVENT
     Dosage: 60-120MG, PRN
     Route: 048
     Dates: start: 20120404, end: 20120522
  5. PARIET [Concomitant]
     Indication: PROPHYLAXIS
     Dosage: 10 MG, QD
     Route: 048
  6. NORVASC [Concomitant]
     Indication: HYPERTENSION
     Dosage: 2.5 MG, QD
     Route: 048
  7. SEIBULE [Concomitant]
     Indication: DIABETES MELLITUS
     Dosage: 150 MG, QD
     Route: 048

REACTIONS (4)
  - Small intestine ulcer [Recovering/Resolving]
  - White blood cell count decreased [Recovered/Resolved]
  - Platelet count decreased [Recovered/Resolved]
  - Haemoglobin decreased [Recovered/Resolved]
